FAERS Safety Report 4574030-3 (Version None)
Quarter: 2005Q1

REPORT INFORMATION
  Report Type: 
  Country: None (occurrence: None)
  Receive Date: 20050204
  Receipt Date: 20050124
  Transmission Date: 20050727
  Serious: Yes (Other)
  Sender: FDA-Public Use
  Company Number: 2005019377

PATIENT
  Sex: Female

DRUGS (3)
  1. NEURONTIN [Suspect]
     Indication: FIBROMYALGIA
     Dosage: 300 MG, ORAL
     Route: 048
  2. VICODIN [Suspect]
     Indication: ILL-DEFINED DISORDER
  3. OLANZAPINE/FLUOXETINE HYDROCHLORIDE (FLUOXETINE HYDROCHLORIDE) [Suspect]
     Indication: ILL-DEFINED DISORDER
     Dosage: 25 MG

REACTIONS (2)
  - HYPERCALCAEMIA [None]
  - RENAL FAILURE ACUTE [None]
